FAERS Safety Report 4645449-7 (Version None)
Quarter: 2005Q2

REPORT INFORMATION
  Report Type: 
  Country: None (occurrence: None)
  Receive Date: 20050425
  Receipt Date: 20050415
  Transmission Date: 20051028
  Serious: Yes (Other)
  Sender: FDA-Public Use
  Company Number: 2005-04-1090

PATIENT
  Age: 43 Year
  Sex: Male

DRUGS (2)
  1. RIBAVIRIN [Suspect]
     Indication: HEPATITIS C
     Dosage: SEE IMAGE
     Route: 048
  2. INTERFERON ALFA-2A INJECTIONABLE POWDER [Suspect]
     Indication: HEPATITIS C
     Dosage: SEE IMAGE
     Route: 042

REACTIONS (4)
  - FACIAL PALSY [None]
  - HYPERACUSIS [None]
  - PARAESTHESIA [None]
  - PARAESTHESIA ORAL [None]
